FAERS Safety Report 17339579 (Version 2)
Quarter: 2020Q2

REPORT INFORMATION
  Report Type: Spontaneous
  Country: LT (occurrence: LT)
  Receive Date: 20200129
  Receipt Date: 20200417
  Transmission Date: 20200713
  Serious: Yes (Hospitalization, Other)
  Sender: FDA-Public Use
  Company Number: LT-ACCORD-170861

PATIENT
  Age: 32 Year
  Sex: Male

DRUGS (16)
  1. CLOZAPINE. [Suspect]
     Active Substance: CLOZAPINE
     Indication: SCHIZOPHRENIA
     Dosage: 50 MG
  2. TACROLIMUS. [Interacting]
     Active Substance: TACROLIMUS
     Indication: IMMUNOSUPPRESSION
     Dosage: 6 MG 1 TIME PER DAY
  3. MYCOPHENOLIC ACID. [Interacting]
     Active Substance: MYCOPHENOLIC ACID
     Indication: IMMUNOSUPPRESSION
     Dosage: 500 MG IN THE MORNING, 1000 MG IN THE EVENING
  4. PALIPERIDONE/PALIPERIDONE PALMITATE [Interacting]
     Active Substance: PALIPERIDONE
     Indication: SCHIZOPHRENIA
     Dosage: 100 MG PALIPERIDONE ONCE A MONTH
  5. OMEPRAZOLE/OMEPRAZOLE MAGNESIUM/OMEPRAZOLE SODIUM [Concomitant]
     Active Substance: OMEPRAZOLE
     Dosage: 20 MG 1 TIME PER DAY
  6. FOSINOPRIL/FOSINOPRIL SODIUM [Concomitant]
     Dosage: 10 MG FOSINOPRIL TWICE DAILY
  7. DOXAZOSIN/DOXAZOSIN MESILATE [Concomitant]
     Dosage: 4 MG 1 TIME PER DAY, BEFORE SLEEP
  8. ALLOPURINOL/ALLOPURINOL SODIUM [Concomitant]
     Active Substance: ALLOPURINOL SODIUM
     Dosage: 100 MG IN THE MORNING
  9. METHYLPREDNISOLONE. [Interacting]
     Active Substance: METHYLPREDNISOLONE
     Indication: IMMUNOSUPPRESSION
     Dosage: 8 MG 2 TIMES PER DAY
  10. VALGANCICLOVIR/VALGANCICLOVIR HYDROCHLORIDE [Concomitant]
     Active Substance: VALGANCICLOVIR
     Dosage: 450 MG 1 TIME PER DAY
  11. METOPROLOL. [Concomitant]
     Active Substance: METOPROLOL
     Dosage: 150 MG DAILY
  12. MOXONIDINE [Concomitant]
     Active Substance: MOXONIDINE
     Dosage: 0.4 MG 1 TIME PER DAY
  13. TIAPRIDE [Concomitant]
     Active Substance: TIAPRIDE
     Dosage: 100 MG 1 TIME PER DAY
  14. METOPROLOL. [Concomitant]
     Active Substance: METOPROLOL
     Dosage: 47.5 MG METOPROLOL
  15. AMLODIPINE/AMLODIPINE BESILATE/AMLODIPINE MALEATE/AMLODIPINE MESILATE [Concomitant]
     Dosage: 10 MG 1 TIME PER DAY
  16. LERCANIDIPINE/LERCANIDIPINE HYDROCHLORIDE [Concomitant]
     Active Substance: LERCANIDIPINE\LERCANIDIPINE HYDROCHLORIDE
     Dosage: 10 MG LERCANIDIPINE HYDROCHLORIDE

REACTIONS (6)
  - Confusional state [Unknown]
  - Asthenia [Unknown]
  - Paradoxical drug reaction [Unknown]
  - Drug resistance [Unknown]
  - Drug interaction [Unknown]
  - Loss of consciousness [Unknown]
